FAERS Safety Report 8561708-X (Version None)
Quarter: 2012Q3

REPORT INFORMATION
  Report Type: 
  Country: None (occurrence: None)
  Receive Date: 20120802
  Receipt Date: 20120725
  Transmission Date: 20120928
  Serious: Yes (Death)
  Sender: FDA-Public Use
  Company Number: TW-BAXTER-2012BAX011315

PATIENT

DRUGS (1)
  1. DIANEAL LOW CALCIUM W/ DEXTROSE 1.5% [Suspect]
     Route: 033

REACTIONS (1)
  - CARDIOVASCULAR DISORDER [None]
